FAERS Safety Report 6006943-X (Version None)
Quarter: 2008Q4

REPORT INFORMATION
  Report Type: 
  Country: None (occurrence: None)
  Receive Date: 20081217
  Receipt Date: 20080212
  Transmission Date: 20090506
  Serious: No
  Sender: FDA-Public Use
  Company Number: US-ASTRAZENECA-2007UW27190

PATIENT
  Age: 73 Year
  Sex: Female
  Weight: 90.7 kg

DRUGS (8)
  1. CRESTOR [Suspect]
     Indication: HYPERLIPIDAEMIA
     Route: 048
     Dates: start: 20071016, end: 20071109
  2. METOPROLOL SUCCINATE [Concomitant]
     Route: 048
  3. AMLODIPINE [Concomitant]
     Indication: CARDIAC DISORDER
  4. BLOOD PRESSURE MEDS [Concomitant]
  5. PAIN PILLS [Concomitant]
  6. ASPIRIN [Concomitant]
     Route: 048
  7. CLONIDINE [Concomitant]
     Route: 048
  8. LOTREL [Concomitant]
     Dosage: 5/20
     Route: 048

REACTIONS (5)
  - ABDOMINAL DISCOMFORT [None]
  - ABDOMINAL PAIN [None]
  - CLUSTER HEADACHE [None]
  - CONSTIPATION [None]
  - TONGUE DISORDER [None]
